FAERS Safety Report 24142610 (Version 1)
Quarter: 2024Q3

REPORT INFORMATION
  Report Type: Spontaneous
  Country: US (occurrence: None)
  Receive Date: 20240726
  Receipt Date: 20240726
  Transmission Date: 20241016
  Serious: Yes (Hospitalization)
  Sender: Public
  Company Number: None

PATIENT
  Age: 73 Year
  Sex: Female
  Weight: 74 kg

DRUGS (1)
  1. FOSAPREPITANT [Suspect]
     Active Substance: FOSAPREPITANT
     Indication: Breast cancer
     Dosage: 150 MG DAY OF TX INTRAVENOUS
     Route: 042
     Dates: start: 20240725, end: 20240725

REACTIONS (2)
  - Chest discomfort [None]
  - Dyspnoea [None]

NARRATIVE: CASE EVENT DATE: 20240725
